FAERS Safety Report 17106996 (Version 2)
Quarter: 2020Q1

REPORT INFORMATION
  Report Type: Spontaneous
  Country: ES (occurrence: ES)
  Receive Date: 20191203
  Receipt Date: 20200131
  Transmission Date: 20200409
  Serious: Yes (Other)
  Sender: FDA-Public Use
  Company Number: ES-BAUSCH-BL-2019-063591

PATIENT
  Age: 50 Year
  Sex: Male

DRUGS (1)
  1. ZYCLARA [Suspect]
     Active Substance: IMIQUIMOD
     Indication: ACTINIC KERATOSIS
     Dosage: STARTED APPROXIMATELY 14/OCT ON AN UNKNOWN YEAR
     Route: 065

REACTIONS (4)
  - Deafness [Unknown]
  - Application site reaction [Unknown]
  - Adverse drug reaction [Unknown]
  - Toxicity to various agents [Unknown]
